FAERS Safety Report 17628626 (Version 1)
Quarter: 2020Q2

REPORT INFORMATION
  Report Type: Spontaneous
  Country: VN (occurrence: VN)
  Receive Date: 20200406
  Receipt Date: 20200406
  Transmission Date: 20200713
  Serious: Yes (Other)
  Sender: FDA-Public Use
  Company Number: VN-ROCHE-2574750

PATIENT
  Sex: Female

DRUGS (1)
  1. AVASTIN [Suspect]
     Active Substance: BEVACIZUMAB
     Indication: COLORECTAL CANCER METASTATIC
     Dosage: 400MG/16ML
     Route: 042
     Dates: start: 20200324

REACTIONS (5)
  - Hepatic enzyme increased [Unknown]
  - Pyrexia [Unknown]
  - Constipation [Unknown]
  - Gastrointestinal perforation [Unknown]
  - Pain [Unknown]

NARRATIVE: CASE EVENT DATE: 20200326
